FAERS Safety Report 7367688-7 (Version None)
Quarter: 2011Q1

REPORT INFORMATION
  Report Type: 
  Country: None (occurrence: None)
  Receive Date: 20110322
  Receipt Date: 20101125
  Transmission Date: 20110831
  Serious: Yes (Death)
  Sender: FDA-Public Use
  Company Number: JP-BAYER-201015063BYL

PATIENT
  Sex: Male
  Weight: 47 kg

DRUGS (10)
  1. GLYCYRON [Concomitant]
     Dosage: DAILY DOSE 150 MG
     Route: 048
     Dates: start: 20080101, end: 20101020
  2. NORVASC [Concomitant]
     Dosage: DAILY DOSE 5 MG
     Route: 048
     Dates: start: 20080101, end: 20101020
  3. ALLELOCK [Concomitant]
     Dosage: DAILY DOSE 2 MG
     Route: 048
     Dates: start: 20090101, end: 20101020
  4. NEXAVAR [Suspect]
     Dosage: 200 MG, BID
     Route: 048
     Dates: start: 20101009, end: 20101011
  5. HUMALOG [Concomitant]
     Dosage: DAILY DOSE 30 U
     Route: 058
     Dates: start: 20080101, end: 20101020
  6. OXYCONTIN [Concomitant]
     Dosage: DAILY DOSE 10 MG
     Route: 048
     Dates: start: 20090101, end: 20101020
  7. FLUOROURACIL [Concomitant]
     Dosage: DAILY DOSE 500 MG
     Route: 013
     Dates: start: 20090113, end: 20100921
  8. ZADITEN [Concomitant]
     Dosage: DAILY DOSE 2 MG
     Route: 048
     Dates: start: 20090101, end: 20101020
  9. NEXAVAR [Suspect]
     Indication: HEPATIC NEOPLASM MALIGNANT
     Dosage: 400 MG, BID
     Route: 048
     Dates: start: 20101007, end: 20101008
  10. OMEPRAL [Concomitant]
     Dosage: DAILY DOSE 20 MG
     Route: 048
     Dates: start: 20090101, end: 20101020

REACTIONS (4)
  - VOMITING [None]
  - DIARRHOEA [None]
  - HEPATIC NEOPLASM MALIGNANT [None]
  - HEPATIC FUNCTION ABNORMAL [None]
